FAERS Safety Report 14738020 (Version 2)
Quarter: 2018Q2

REPORT INFORMATION
  Report Type: Spontaneous
  Country: FI (occurrence: FI)
  Receive Date: 20180409
  Receipt Date: 20180412
  Transmission Date: 20180711
  Serious: Yes (Hospitalization)
  Sender: FDA-Public Use
  Company Number: FI-PFIZER INC-2018140165

PATIENT
  Age: 73 Year
  Sex: Male

DRUGS (3)
  1. CAPECITABINE. [Suspect]
     Active Substance: CAPECITABINE
     Indication: COLORECTAL ADENOCARCINOMA
     Dosage: IN COMBINATION WITH BEVACIZUMAB AND OXALIPLATIN
     Route: 042
     Dates: start: 20171106
  2. AVASTIN [Suspect]
     Active Substance: BEVACIZUMAB
     Indication: COLORECTAL ADENOCARCINOMA
     Dosage: 600 MG, UNK
     Route: 042
     Dates: start: 20171106, end: 20180222
  3. OXALIPLATIN. [Suspect]
     Active Substance: OXALIPLATIN
     Indication: COLORECTAL ADENOCARCINOMA
     Dosage: IN COMBINATION WITH BEVACIZUMAB AND CAPECITABINE
     Route: 042
     Dates: start: 20171106

REACTIONS (1)
  - Cerebral amyloid angiopathy [Not Recovered/Not Resolved]

NARRATIVE: CASE EVENT DATE: 20180202
